FAERS Safety Report 6410661-3 (Version None)
Quarter: 2009Q4

REPORT INFORMATION
  Report Type: 
  Country: None (occurrence: None)
  Receive Date: 20091022
  Receipt Date: 20091013
  Transmission Date: 20100525
  Serious: Yes (Other)
  Sender: FDA-Public Use
  Company Number: US-BIOGENIDEC-2009BI033028

PATIENT
  Sex: Female

DRUGS (2)
  1. TYSABRI [Suspect]
     Indication: MULTIPLE SCLEROSIS
     Route: 042
     Dates: start: 20041227
  2. TYSABRI [Suspect]
     Route: 042
     Dates: start: 20061205

REACTIONS (5)
  - ALCOHOLISM [None]
  - AMNESIA [None]
  - EPILEPSY [None]
  - MALIGNANT NEOPLASM OF EYE [None]
  - NUCLEAR MAGNETIC RESONANCE IMAGING BRAIN ABNORMAL [None]
